FAERS Safety Report 17039005 (Version 1)
Quarter: 2019Q4

REPORT INFORMATION
  Report Type: Spontaneous
  Country: GB (occurrence: GB)
  Receive Date: 20191115
  Receipt Date: 20191115
  Transmission Date: 20200122
  Serious: Yes (Other)
  Sender: FDA-Public Use
  Company Number: GB-NAPPMUNDI-GBR-2019-0072511

PATIENT
  Age: 83 Year
  Sex: Female

DRUGS (8)
  1. APIXABAN [Concomitant]
     Active Substance: APIXABAN
  2. FUROSEMIDE. [Concomitant]
     Active Substance: FUROSEMIDE
  3. BUTRANS [Suspect]
     Active Substance: BUPRENORPHINE
     Indication: BACK PAIN
     Dosage: 10 MCG, UNK
     Route: 062
  4. PARACETAMOL [Concomitant]
     Active Substance: ACETAMINOPHEN
  5. BISOPROLOL FUMARATE. [Concomitant]
     Active Substance: BISOPROLOL FUMARATE
  6. ZOMETA [Concomitant]
     Active Substance: ZOLEDRONIC ACID
  7. PREGABALIN. [Concomitant]
     Active Substance: PREGABALIN
  8. AMITRIPTYLINE [Concomitant]
     Active Substance: AMITRIPTYLINE

REACTIONS (5)
  - Application site rash [Recovering/Resolving]
  - Dermal absorption increased [Unknown]
  - Application site pain [Recovering/Resolving]
  - Application site pain [Unknown]
  - Application site erythema [Recovering/Resolving]
